FAERS Safety Report 16740792 (Version 1)
Quarter: 2019Q3

REPORT INFORMATION
  Report Type: Spontaneous
  Country: US (occurrence: US)
  Receive Date: 20190826
  Receipt Date: 20190826
  Transmission Date: 20191005
  Serious: Yes (Hospitalization)
  Sender: FDA-Public Use
  Company Number: US-VERTEX PHARMACEUTICALS-2019-007902

PATIENT
  Age: 37 Year
  Sex: Female

DRUGS (6)
  1. TOBI PODHALER [Concomitant]
     Active Substance: TOBRAMYCIN
  2. KALYDECO [Suspect]
     Active Substance: IVACAFTOR
     Indication: CYSTIC FIBROSIS
     Dosage: 150MG, BID
     Route: 048
     Dates: start: 20130904
  3. ZENPEP [Concomitant]
     Active Substance: PANCRELIPASE AMYLASE\PANCRELIPASE LIPASE\PANCRELIPASE PROTEASE
  4. CEFTAZIDIME. [Concomitant]
     Active Substance: CEFTAZIDIME
  5. PULMOZYME [Concomitant]
     Active Substance: DORNASE ALFA
  6. SERTRALINE [Concomitant]
     Active Substance: SERTRALINE HYDROCHLORIDE

REACTIONS (1)
  - Cystic fibrosis respiratory infection suppression [Recovered/Resolved]

NARRATIVE: CASE EVENT DATE: 20190710
